FAERS Safety Report 6474583-4 (Version None)
Quarter: 2009Q4

REPORT INFORMATION
  Report Type: 
  Country: None (occurrence: None)
  Receive Date: 20091204
  Receipt Date: 20090526
  Transmission Date: 20100525
  Serious: Yes (Other)
  Sender: FDA-Public Use
  Company Number: GB-ELI_LILLY_AND_COMPANY-GB200901005149

PATIENT
  Age: 56 Year
  Sex: Male

DRUGS (2)
  1. CIALIS [Suspect]
     Indication: ERECTILE DYSFUNCTION
     Dosage: 10 MG (HALF A 20MG TABLET), 2-3 TIMES A WEEK
     Route: 048
     Dates: start: 20070101
  2. BICALUTAMIDE [Concomitant]
     Indication: PROSTATE CANCER
     Dosage: 150 MG, DAILY (1/D)
     Route: 065

REACTIONS (1)
  - INTRAOCULAR PRESSURE INCREASED [None]
